FAERS Safety Report 25660415 (Version 2)
Quarter: 2025Q3

REPORT INFORMATION
  Report Type: Spontaneous
  Country: EU (occurrence: EU)
  Receive Date: 20250808
  Receipt Date: 20250918
  Transmission Date: 20251020
  Serious: Yes (Other)
  Sender: SANOFI AVENTIS
  Company Number: EU-EMA-DD-20250729-7482679-105306

PATIENT
  Age: 76 Year
  Sex: Male

DRUGS (8)
  1. OXALIPLATIN [Suspect]
     Active Substance: OXALIPLATIN
     Indication: Colon cancer stage III
     Dates: start: 2011
  2. OXALIPLATIN [Suspect]
     Active Substance: OXALIPLATIN
     Dates: start: 201607, end: 201610
  3. CAPECITABINE [Suspect]
     Active Substance: CAPECITABINE
     Indication: Colon cancer stage III
     Dates: start: 2011
  4. CAPECITABINE [Suspect]
     Active Substance: CAPECITABINE
     Indication: Non-small cell lung cancer stage IV
     Dosage: 1000 MG/M2, QD (D1-14 IN THREE WEEKLY COURSES)
     Dates: start: 201512
  5. CAPECITABINE [Suspect]
     Active Substance: CAPECITABINE
     Indication: Rectosigmoid cancer metastatic
     Dates: start: 2016, end: 201610
  6. CERITINIB [Suspect]
     Active Substance: CERITINIB
     Indication: Non-small cell lung cancer stage IV
     Dosage: 600 MG, QD (80% OF THE NORMAL DOSAGE)
     Dates: start: 201508, end: 201704
  7. CERITINIB [Suspect]
     Active Substance: CERITINIB
     Indication: Non-small cell lung cancer
  8. CARBOPLATIN;PEMETREXED [Concomitant]
     Indication: Non-small cell lung cancer stage IV
     Dates: start: 201412, end: 201502

REACTIONS (3)
  - Hand-foot-genital syndrome [Unknown]
  - Diarrhoea [Unknown]
  - Nausea [Unknown]

NARRATIVE: CASE EVENT DATE: 20151201
